FAERS Safety Report 10583777 (Version 1)
Quarter: 2014Q4

REPORT INFORMATION
  Report Type: Spontaneous
  Country: US (occurrence: None)
  Receive Date: 20141112
  Receipt Date: 20141112
  Transmission Date: 20150529
  Serious: Yes (Life-Threatening, Hospitalization, Other)
  Sender: FDA-Public Use
  Company Number: LH201400375

PATIENT
  Age: 21 Year
  Sex: Female

DRUGS (3)
  1. MAKENA [Suspect]
     Active Substance: HYDROXYPROGESTERONE CAPROATE
     Indication: OFF LABEL USE
     Dosage: 250 MG, ONCE WEEKLY, INTRAMUSCULAR
     Route: 030
     Dates: start: 20140822, end: 20140926
  2. PRENATAL VITAMINS CALCIUM PANTOTHENATEM CYANOCOBALAMIN, ERGOCALCIFEROL, NICOTINAMIDE, PYRIDOXINE HYDROCHILORIDE, RETINAL, PALMITATE, RIBOFLAVIN, THIAMINE MONONITRATE) [Concomitant]
  3. MAKENA [Suspect]
     Active Substance: HYDROXYPROGESTERONE CAPROATE
     Indication: PREMATURE DELIVERY
     Dosage: 250 MG, ONCE WEEKLY, INTRAMUSCULAR
     Route: 030
     Dates: start: 20140822, end: 20140926

REACTIONS (5)
  - Premature separation of placenta [None]
  - Premature labour [None]
  - Cervix enlargement [None]
  - Off label use [None]
  - Cervical incompetence [None]

NARRATIVE: CASE EVENT DATE: 20140822
